FAERS Safety Report 25759227 (Version 1)
Quarter: 2025Q3

REPORT INFORMATION
  Report Type: Spontaneous
  Country: CN (occurrence: CN)
  Receive Date: 20250904
  Receipt Date: 20250904
  Transmission Date: 20251021
  Serious: No
  Sender: ALKEM
  Company Number: CN-ALKEM LABORATORIES LIMITED-CN-ALKEM-2025-03446

PATIENT
  Age: 42 Year
  Sex: Female

DRUGS (8)
  1. MESALAMINE [Suspect]
     Active Substance: MESALAMINE
     Indication: SAPHO syndrome
     Route: 065
  2. ADALIMUMAB [Suspect]
     Active Substance: ADALIMUMAB
     Indication: SAPHO syndrome
     Dosage: 40 MILLIGRAM, ONCE IN 2 WEEKS (EVERY 2 WEEKS)
     Route: 065
  3. CELECOXIB [Suspect]
     Active Substance: CELECOXIB
     Indication: SAPHO syndrome
     Route: 065
  4. HALOMETASONE [Suspect]
     Active Substance: HALOMETASONE
     Indication: SAPHO syndrome
     Route: 065
  5. SECUKINUMAB [Suspect]
     Active Substance: SECUKINUMAB
     Indication: SAPHO syndrome
     Dosage: 150 MILLIGRAM, ONCE WEEKLY (WEEKLY FOR WEEKS 0 THROUGH 4)
     Route: 065
  6. SECUKINUMAB [Suspect]
     Active Substance: SECUKINUMAB
     Route: 065
  7. SECUKINUMAB [Suspect]
     Active Substance: SECUKINUMAB
     Route: 065
  8. THALIDOMIDE [Suspect]
     Active Substance: THALIDOMIDE
     Indication: SAPHO syndrome
     Route: 065

REACTIONS (1)
  - Drug ineffective [Unknown]
